FAERS Safety Report 15265720 (Version 1)
Quarter: 2018Q3

REPORT INFORMATION
  Report Type: Spontaneous
  Country: US (occurrence: US)
  Receive Date: 20180810
  Receipt Date: 20180810
  Transmission Date: 20181010
  Serious: Yes (Other)
  Sender: FDA-Public Use
  Company Number: US-VIIV HEALTHCARE LIMITED-US2018GSK142517

PATIENT
  Sex: Male

DRUGS (3)
  1. DESCOVY [Suspect]
     Active Substance: EMTRICITABINE\TENOFOVIR ALAFENAMIDE FUMARATE
  2. TIVICAY [Suspect]
     Active Substance: DOLUTEGRAVIR SODIUM
  3. JULUCA [Suspect]
     Active Substance: DOLUTEGRAVIR SODIUM\RILPIVIRINE HYDROCHLORIDE
     Dosage: 1 DF, QD
     Route: 048

REACTIONS (3)
  - Therapeutic response unexpected [Unknown]
  - Renal transplant [Recovered/Resolved]
  - Blood creatinine increased [Recovering/Resolving]
